FAERS Safety Report 8153316-X (Version None)
Quarter: 2012Q1

REPORT INFORMATION
  Report Type: 
  Country: None (occurrence: None)
  Receive Date: 20120103
  Receipt Date: 20111030
  Transmission Date: 20120608
  Serious: No
  Sender: FDA-Public Use
  Company Number: AE-2011-002895

PATIENT
  Age: 59 Year
  Sex: Female
  Weight: 99.7913 kg

DRUGS (8)
  1. CHANTIX [Concomitant]
  2. LISINOPRIL [Concomitant]
  3. CLONIDINE [Concomitant]
  4. PEGINTRON (PEGINTERFERON ALFA-2A) [Concomitant]
  5. RBAVIRIN (RIBAVIRIN) [Concomitant]
  6. METOPROLOL TARTRATE [Concomitant]
  7. ASPIRIN [Concomitant]
  8. INCIVEK [Suspect]
     Dosage: 2250 MG (750 MG,1 IN 8 HR),ORAL
     Route: 048
     Dates: start: 20111028

REACTIONS (1)
  - DRUG DOSE OMISSION [None]
